FAERS Safety Report 5817539-4 (Version None)
Quarter: 2008Q3

REPORT INFORMATION
  Report Type: 
  Country: None (occurrence: None)
  Receive Date: 20080722
  Receipt Date: 20080711
  Transmission Date: 20090109
  Serious: Yes (Other)
  Sender: FDA-Public Use
  Company Number: US-MERCK-0807USA02985

PATIENT

DRUGS (20)
  1. SINGULAIR [Suspect]
     Route: 064
  2. AMARYL [Suspect]
     Route: 064
  3. BENAZEPRIL HYDROCHLORIDE [Suspect]
     Route: 064
  4. BUPROPION HYDROCHLORIDE [Suspect]
     Route: 064
  5. BUSPAR [Suspect]
     Route: 064
  6. FLONASE [Suspect]
     Route: 064
  7. HYDROCHLOROTHIAZIDE [Suspect]
     Route: 064
  8. HYDROXYZINE HYDROCHLORIDE [Suspect]
     Route: 064
  9. METFORMIN [Suspect]
     Route: 064
  10. NEXIUM [Suspect]
     Route: 064
  11. NITROGLYCERIN [Suspect]
     Route: 064
  12. SEROQUEL [Suspect]
     Route: 064
  13. TRAMADOL HYDROCHLORIDE [Suspect]
     Route: 064
  14. AVANDIA [Suspect]
     Route: 064
  15. CARISOPRODOL [Suspect]
     Route: 064
  16. HYDROCODONE BITARTRATE [Suspect]
     Route: 064
  17. INSULIN [Suspect]
     Route: 064
  18. NABUMETONE [Suspect]
     Route: 064
  19. ZOCOR [Suspect]
     Route: 064
  20. VITAMINS (UNSPECIFIED) [Suspect]
     Route: 064

REACTIONS (2)
  - ABORTION INDUCED [None]
  - FOETAL HEART RATE ABNORMAL [None]
